FAERS Safety Report 10996162 (Version 1)
Quarter: 2015Q2

REPORT INFORMATION
  Report Type: Other
  Country: GB (occurrence: GB)
  Receive Date: 20150407
  Receipt Date: 20150407
  Transmission Date: 20150821
  Serious: Yes (Other)
  Sender: FDA-Public Use
  Company Number: GB-MYLANLABS-2015M1010022

PATIENT

DRUGS (9)
  1. ALPHA TOCOPHEROL [Concomitant]
     Dosage: 1 ML, QD
     Dates: start: 20150129
  2. DORZOLAMIDE HYDROCHLORIDE. [Concomitant]
     Active Substance: DORZOLAMIDE HYDROCHLORIDE
     Dosage: 1 DF, BID
     Dates: start: 20140821
  3. ASPIRIN                            /00002701/ [Concomitant]
     Active Substance: ASPIRIN
     Dosage: 1 DF, QD
     Dates: start: 20140821
  4. TRIMETHOPRIM. [Concomitant]
     Active Substance: TRIMETHOPRIM
     Dosage: 1 DF, UNK
     Dates: start: 20141222, end: 20141225
  5. ADCAL [Concomitant]
     Dosage: 1 DF, BID
     Dates: start: 20150129, end: 20150226
  6. PRO D3 [Concomitant]
     Dosage: 1 DF, QW
     Dates: start: 20150129
  7. METFORMIN [Concomitant]
     Active Substance: METFORMIN HYDROCHLORIDE
     Dosage: 2 DF, BID (WITH FOOD)
     Dates: start: 20140821
  8. ATORVASTATIN [Suspect]
     Active Substance: ATORVASTATIN
     Dosage: 1 DF, QD
     Dates: start: 20140821
  9. ADIPINE MR [Concomitant]
     Dosage: 1 DF, BID
     Dates: start: 20140821

REACTIONS (1)
  - Alopecia [Recovering/Resolving]

NARRATIVE: CASE EVENT DATE: 20150317
